FAERS Safety Report 5006633-6 (Version None)
Quarter: 2006Q2

REPORT INFORMATION
  Report Type: 
  Country: None (occurrence: None)
  Receive Date: 20060516
  Receipt Date: 20060503
  Transmission Date: 20061013
  Serious: Yes (Other)
  Sender: FDA-Public Use
  Company Number: RB-2519-2006

PATIENT
  Age: 47 Year
  Sex: Female

DRUGS (6)
  1. BUPRENORPHINE HCL [Suspect]
     Indication: DETOXIFICATION
     Dosage: 10 MG/70MG/10 MG/70 MG/10 MG; SL
     Dates: start: 20030101, end: 20040101
  2. BUPRENORPHINE HCL [Suspect]
     Indication: DETOXIFICATION
     Dosage: 10 MG/70MG/10 MG/70 MG/10 MG; SL
     Dates: start: 20051001, end: 20050101
  3. BUPRENORPHINE HCL [Suspect]
     Indication: DETOXIFICATION
     Dosage: 10 MG/70MG/10 MG/70 MG/10 MG; SL
     Dates: start: 20050101
  4. BUPRENORPHINE HCL [Suspect]
     Indication: DETOXIFICATION
     Dosage: 10 MG/70MG/10 MG/70 MG/10 MG; SL
     Dates: start: 20050101
  5. BUPRENORPHINE HCL [Suspect]
     Indication: DETOXIFICATION
     Dosage: 10 MG/70MG/10 MG/70 MG/10 MG; SL
     Dates: start: 20051121
  6. DOTHIEPIN HYDROCHLORIDE [Concomitant]

REACTIONS (6)
  - DEPENDENCE [None]
  - DRUG WITHDRAWAL SYNDROME [None]
  - INTENTIONAL DRUG MISUSE [None]
  - INTENTIONAL OVERDOSE [None]
  - RHINORRHOEA [None]
  - SUICIDE ATTEMPT [None]
